FAERS Safety Report 19905789 (Version 1)
Quarter: 2021Q3

REPORT INFORMATION
  Report Type: Spontaneous
  Country: CA (occurrence: CA)
  Receive Date: 20210930
  Receipt Date: 20210930
  Transmission Date: 20211014
  Serious: Yes (Other)
  Sender: FDA-Public Use
  Company Number: CA-TEVA-2021-CA-1958568

PATIENT
  Age: 44 Year
  Sex: Male

DRUGS (15)
  1. DEXTROAMPHETAMINE/00016601/ [Concomitant]
  2. HYDROMORPH CONTIN [Suspect]
     Active Substance: HYDROMORPHONE
     Indication: PAIN
     Dosage: 9 MILLIGRAM DAILY;
     Route: 065
  3. HYDROMORPH CONTIN [Suspect]
     Active Substance: HYDROMORPHONE
     Indication: BACK PAIN
     Dosage: 6 MILLIGRAM DAILY;
     Route: 065
  4. CANNABIS SATIVA [Concomitant]
     Active Substance: CANNABIS SATIVA FLOWERING TOP
  5. ONDANSETRON [Concomitant]
     Active Substance: ONDANSETRON
  6. HYDROMORPHONE HYDROCHLORIDE. [Suspect]
     Active Substance: HYDROMORPHONE HYDROCHLORIDE
     Indication: BACK PAIN
  7. SEMAGLUTIDE [Concomitant]
     Active Substance: SEMAGLUTIDE
  8. HYDROMORPHONE HYDROCHLORIDE. [Suspect]
     Active Substance: HYDROMORPHONE HYDROCHLORIDE
     Indication: PAIN
     Dosage: 48 MILLIGRAM DAILY;
     Route: 065
  9. LURASIDONE HYDROCHLORIDE. [Concomitant]
     Active Substance: LURASIDONE HYDROCHLORIDE
  10. DICLOFENAC [Concomitant]
     Active Substance: DICLOFENAC
  11. LAMOTRIGINE. [Concomitant]
     Active Substance: LAMOTRIGINE
  12. GABAPENTIN. [Concomitant]
     Active Substance: GABAPENTIN
  13. MOCLOBEMIDE [Concomitant]
     Active Substance: MOCLOBEMIDE
  14. PRAMIPEXOLE. [Concomitant]
     Active Substance: PRAMIPEXOLE
  15. ROSUVASTATIN. [Concomitant]
     Active Substance: ROSUVASTATIN
     Route: 058

REACTIONS (9)
  - Joint injury [Recovered/Resolved]
  - Drug use disorder [Recovered/Resolved]
  - Intentional product use issue [Recovered/Resolved]
  - Somatic symptom disorder [Recovered/Resolved]
  - Drug ineffective [Recovered/Resolved]
  - Emotional distress [Recovered/Resolved]
  - Impaired quality of life [Recovered/Resolved]
  - Fall [Recovered/Resolved]
  - Pain [Recovered/Resolved]
